FAERS Safety Report 9412087 (Version 3)
Quarter: 2013Q2

REPORT INFORMATION
  Report Type: Spontaneous
  Country: IT (occurrence: IT)
  Receive Date: 20130410
  Receipt Date: 20130510
  Transmission Date: 20140414
  Serious: Yes (Hospitalization)
  Sender: FDA-Public Use
  Company Number: TIF2013A00057

PATIENT
  Age: 71 Year
  Sex: Female

DRUGS (7)
  1. COMPETACT [Suspect]
     Indication: DIABETES MELLITUS
     Route: 048
     Dates: start: 20120315, end: 20130315
  2. SOLOSA [Suspect]
     Indication: DIABETES MELLITUS
     Route: 048
     Dates: start: 20110315, end: 20130315
  3. IRON (IRON) [Concomitant]
  4. SIMVASTATIN (SIMVASTATIN) [Concomitant]
  5. LANTUS (INSULIN GLARGINE) [Concomitant]
  6. FOLACOR (FOOD SUPPLEMENT) [Concomitant]
  7. LANTUS (INSULIN GLARGINE) [Concomitant]

REACTIONS (1)
  - Pancreatitis acute [None]
